FAERS Safety Report 15349014 (Version 1)
Quarter: 2018Q3

REPORT INFORMATION
  Report Type: Spontaneous
  Country: US (occurrence: US)
  Receive Date: 20180904
  Receipt Date: 20180904
  Transmission Date: 20181010
  Serious: Yes (Other)
  Sender: FDA-Public Use
  Company Number: US-MYLANLABS-2018M1064869

PATIENT
  Age: 62 Year
  Sex: Male

DRUGS (5)
  1. METHOTREXATE. [Suspect]
     Active Substance: METHOTREXATE
     Indication: TUMOUR PAIN
  2. PAZOPANIB [Concomitant]
     Active Substance: PAZOPANIB
     Indication: SARCOMA METASTATIC
  3. METHOTREXATE. [Suspect]
     Active Substance: METHOTREXATE
     Indication: PERIPHERAL NERVE SHEATH TUMOUR MALIGNANT
     Dosage: 50 MG (25 MG/ML)
     Route: 026
  4. METHOTREXATE. [Suspect]
     Active Substance: METHOTREXATE
     Indication: METASTATIC NEOPLASM
  5. PAZOPANIB [Concomitant]
     Active Substance: PAZOPANIB
     Indication: SOFT TISSUE SARCOMA
     Route: 065

REACTIONS (1)
  - Drug ineffective [Unknown]
